FAERS Safety Report 16436274 (Version 1)
Quarter: 2019Q2

REPORT INFORMATION
  Report Type: Spontaneous
  Country: US (occurrence: US)
  Receive Date: 20190614
  Receipt Date: 20190614
  Transmission Date: 20190711
  Serious: No
  Sender: FDA-Public Use
  Company Number: US-JNJFOC-20170425172

PATIENT
  Age: 63 Year
  Sex: Female

DRUGS (2)
  1. EXALGO [Suspect]
     Active Substance: HYDROMORPHONE HYDROCHLORIDE
     Indication: PAIN
     Route: 048
     Dates: start: 2016
  2. BIOFREEZE [Concomitant]
     Active Substance: MENTHOL
     Route: 065

REACTIONS (2)
  - Food interaction [Unknown]
  - Therapeutic product effect variable [Unknown]
